FAERS Safety Report 9096951 (Version 1)
Quarter: 2013Q1

REPORT INFORMATION
  Report Type: Spontaneous
  Country: US (occurrence: None)
  Receive Date: 20130125
  Receipt Date: 20130125
  Transmission Date: 20140127
  Serious: Yes (Hospitalization)
  Sender: FDA-Public Use
  Company Number: ML2013-US-00001

PATIENT
  Age: 73 Year
  Sex: Male

DRUGS (8)
  1. SIMVASTATIN [Suspect]
     Indication: PRODUCT USED FOR UNKNOWN INDICATION
  2. AZITHROMYCIN [Suspect]
     Indication: BRONCHITIS
     Route: 048
  3. ALLOPURINOL [Concomitant]
  4. PREDNISONE [Concomitant]
  5. LABETALOL [Concomitant]
  6. BUMETANIDE [Concomitant]
  7. AMLODIPINE [Concomitant]
  8. INSULIN GLARGINE [Concomitant]

REACTIONS (3)
  - Rhabdomyolysis [None]
  - Drug interaction [None]
  - Renal failure acute [None]
